FAERS Safety Report 8780269 (Version 1)
Quarter: 2012Q4

REPORT INFORMATION
  Report Type: Spontaneous
  Country: US (occurrence: None)
  Receive Date: 20120905
  Receipt Date: 20120905
  Transmission Date: 20130627
  Serious: Yes (Other)
  Sender: FDA-Public Use
  Company Number: None

PATIENT
  Age: 83 Year
  Sex: Male
  Weight: 112.95 kg

DRUGS (1)
  1. LEVOFLOXACIN [Suspect]
     Indication: STAPHYLOCOCCAL INFECTION
     Dosage: 1/Day
     Route: 048
     Dates: start: 20120726, end: 20120730

REACTIONS (3)
  - Pain in extremity [None]
  - Gait disturbance [None]
  - Pain [None]
